FAERS Safety Report 5500857-7 (Version None)
Quarter: 2007Q4

REPORT INFORMATION
  Report Type: 
  Country: None (occurrence: None)
  Receive Date: 20071029
  Receipt Date: 20071023
  Transmission Date: 20080405
  Serious: Yes (Other)
  Sender: FDA-Public Use
  Company Number: D0054824A

PATIENT
  Age: 66 Year
  Sex: Female
  Weight: 95 kg

DRUGS (4)
  1. AVANDIA [Suspect]
     Indication: DIABETES MELLITUS
     Route: 048
     Dates: start: 20020101
  2. AMARYL [Concomitant]
     Indication: DIABETES MELLITUS
     Route: 048
     Dates: start: 19990101
  3. METOPROLOL SUCCINATE [Concomitant]
     Dosage: 1TAB TWICE PER DAY
     Route: 048
     Dates: start: 19970101
  4. MICARDIS [Concomitant]
     Dosage: 40MG TWICE PER DAY
     Route: 065
     Dates: start: 20020101

REACTIONS (3)
  - ANGINA PECTORIS [None]
  - OEDEMA [None]
  - WEIGHT INCREASED [None]
